FAERS Safety Report 9424179 (Version 1)
Quarter: 2013Q3

REPORT INFORMATION
  Report Type: Spontaneous
  Country: RU (occurrence: RU)
  Receive Date: 20130729
  Receipt Date: 20130729
  Transmission Date: 20140515
  Serious: Yes (Other)
  Sender: FDA-Public Use
  Company Number: RU-ABBOTT-13X-251-1117392-00

PATIENT
  Age: 8 Year
  Sex: Male

DRUGS (4)
  1. DEPAKINE CHRONOSPHERE [Suspect]
     Indication: EPILEPSY
     Route: 048
     Dates: start: 20130612, end: 20130624
  2. DEPAKINE CHRONOSPHERE [Suspect]
     Route: 048
     Dates: start: 20130625, end: 20130626
  3. LAMOTRIGINE [Concomitant]
     Indication: PRODUCT USED FOR UNKNOWN INDICATION
  4. OSPOLOT [Concomitant]
     Indication: PRODUCT USED FOR UNKNOWN INDICATION

REACTIONS (7)
  - Product counterfeit [Unknown]
  - Epilepsy [Recovered/Resolved]
  - Condition aggravated [Unknown]
  - Convulsion [Recovered/Resolved]
  - Insomnia [Recovered/Resolved]
  - Nervous system disorder [Recovered/Resolved]
  - Drug ineffective [Unknown]
